FAERS Safety Report 15996573 (Version 1)
Quarter: 2019Q1

REPORT INFORMATION
  Report Type: Spontaneous
  Country: FR (occurrence: FR)
  Receive Date: 20190222
  Receipt Date: 20190222
  Transmission Date: 20190418
  Serious: Yes (Hospitalization)
  Sender: FDA-Public Use
  Company Number: FR-ASTRAZENECA-2019SE28459

PATIENT
  Age: 61 Year
  Sex: Male

DRUGS (5)
  1. COLCHICINE. [Suspect]
     Active Substance: COLCHICINE
     Route: 048
     Dates: end: 20150123
  2. CRESTOR [Suspect]
     Active Substance: ROSUVASTATIN CALCIUM
     Route: 048
     Dates: end: 20150123
  3. KARDEGIC [Suspect]
     Active Substance: ASPIRIN DL-LYSINE
     Route: 048
     Dates: end: 20150123
  4. ZYLORIC [Suspect]
     Active Substance: ALLOPURINOL
     Route: 048
     Dates: end: 20150123
  5. CANDESARTAN CILEXETIL. [Suspect]
     Active Substance: CANDESARTAN CILEXETIL
     Route: 048
     Dates: end: 20150123

REACTIONS (5)
  - Anaemia [Unknown]
  - Leukopenia [Unknown]
  - Pancytopenia [Unknown]
  - Thrombocytopenia [Unknown]
  - Neutropenia [Unknown]

NARRATIVE: CASE EVENT DATE: 201403
